FAERS Safety Report 24792182 (Version 7)
Quarter: 2025Q2

REPORT INFORMATION
  Report Type: Spontaneous
  Country: DE (occurrence: DE)
  Receive Date: 20241231
  Receipt Date: 20250417
  Transmission Date: 20250716
  Serious: Yes (Death, Other)
  Sender: CELLTRION
  Company Number: None

PATIENT

DRUGS (18)
  1. HERZUMA [Suspect]
     Active Substance: TRASTUZUMAB-PKRB
     Indication: Breast cancer
     Route: 042
     Dates: start: 20240409
  2. HERZUMA [Suspect]
     Active Substance: TRASTUZUMAB-PKRB
     Indication: Monoclonal antibody unconjugated therapy
     Route: 042
     Dates: start: 20240430
  3. HERZUMA [Suspect]
     Active Substance: TRASTUZUMAB-PKRB
     Indication: Breast cancer
     Route: 042
     Dates: start: 20240611
  4. HERZUMA [Suspect]
     Active Substance: TRASTUZUMAB-PKRB
     Route: 042
     Dates: start: 20240521
  5. HERZUMA [Suspect]
     Active Substance: TRASTUZUMAB-PKRB
     Route: 042
     Dates: start: 20240521
  6. HERZUMA [Suspect]
     Active Substance: TRASTUZUMAB-PKRB
     Route: 042
     Dates: start: 20240611
  7. HERZUMA [Suspect]
     Active Substance: TRASTUZUMAB-PKRB
     Route: 042
     Dates: start: 20240611
  8. HERZUMA [Suspect]
     Active Substance: TRASTUZUMAB-PKRB
     Dates: start: 20240611
  9. HERZUMA [Suspect]
     Active Substance: TRASTUZUMAB-PKRB
     Dates: start: 20240430
  10. HERZUMA [Suspect]
     Active Substance: TRASTUZUMAB-PKRB
     Dates: start: 20240521
  11. PACLITAXEL [Suspect]
     Active Substance: PACLITAXEL
     Indication: Breast cancer female
     Dosage: 151 MG, 1/WEEK
     Route: 042
     Dates: start: 20240409, end: 20240430
  12. PACLITAXEL [Suspect]
     Active Substance: PACLITAXEL
     Dosage: 189 MG, 1/WEEK
     Route: 042
     Dates: start: 20240430, end: 20240611
  13. PACLITAXEL [Suspect]
     Active Substance: PACLITAXEL
     Dosage: 300 MG, 1/WEEK
     Dates: start: 20240409, end: 20240611
  14. TAXOL [Suspect]
     Active Substance: PACLITAXEL
     Indication: Breast cancer
     Route: 042
     Dates: start: 202404
  15. BISOPROLOL [Concomitant]
     Active Substance: BISOPROLOL
     Indication: Hypertension
     Route: 048
  16. ADVANTAN S [Concomitant]
     Indication: Erythema
     Route: 065
  17. ADVANTAN S [Concomitant]
     Indication: Pruritus
  18. PANTOPRAZOLE SODIUM [Concomitant]
     Active Substance: PANTOPRAZOLE SODIUM
     Route: 048

REACTIONS (5)
  - Right ventricular failure [Fatal]
  - Multiple organ dysfunction syndrome [Fatal]
  - Immune-mediated lung disease [Fatal]
  - Acute respiratory distress syndrome [Fatal]
  - Pneumonitis [Fatal]

NARRATIVE: CASE EVENT DATE: 20240618
